FAERS Safety Report 13487025 (Version 1)
Quarter: 2017Q2

REPORT INFORMATION
  Report Type: Spontaneous
  Country: IT (occurrence: IT)
  Receive Date: 20170426
  Receipt Date: 20170426
  Transmission Date: 20170830
  Serious: Yes (Other)
  Sender: FDA-Public Use
  Company Number: IT-MYLANLABS-2007S1010135

PATIENT

DRUGS (1)
  1. IBUPROFEN. [Suspect]
     Active Substance: IBUPROFEN
     Indication: EAR PAIN
     Dosage: UNK

REACTIONS (7)
  - Seizure [Unknown]
  - Ataxia [Unknown]
  - False positive investigation result [Recovered/Resolved]
  - Hypotonia [Unknown]
  - Diplopia [Unknown]
  - Vomiting [Unknown]
  - Overdose [Unknown]
